FAERS Safety Report 14505631 (Version 3)
Quarter: 2018Q2

REPORT INFORMATION
  Report Type: Spontaneous
  Country: US (occurrence: US)
  Receive Date: 20180208
  Receipt Date: 20180525
  Transmission Date: 20180711
  Serious: Yes (Other)
  Sender: FDA-Public Use
  Company Number: US-BAYER-2018-023028

PATIENT
  Age: 46 Year
  Sex: Female

DRUGS (55)
  1. FLAGYL [Suspect]
     Active Substance: METRONIDAZOLE\METRONIDAZOLE HYDROCHLORIDE
     Dosage: UNK
  2. SOLU-MEDROL [Concomitant]
     Active Substance: METHYLPREDNISOLONE SODIUM SUCCINATE
     Dosage: UNK
  3. PREDNISONE. [Concomitant]
     Active Substance: PREDNISONE
  4. AMOXICILLIN. [Concomitant]
     Active Substance: AMOXICILLIN
     Dosage: UNK
  5. LYRICA [Concomitant]
     Active Substance: PREGABALIN
     Dosage: 100 MG, BID
  6. CIPRO [Suspect]
     Active Substance: CIPROFLOXACIN HYDROCHLORIDE
     Indication: ABDOMINAL ABSCESS
     Dosage: 500 MG, BID
     Dates: start: 20110107, end: 20110121
  7. CIPRO [Suspect]
     Active Substance: CIPROFLOXACIN HYDROCHLORIDE
     Indication: PELVIC ABSCESS
     Dosage: 500 MG, UNK
     Dates: start: 20110112, end: 20110113
  8. CIPRO [Suspect]
     Active Substance: CIPROFLOXACIN HYDROCHLORIDE
     Indication: PELVIC ABSCESS
     Dosage: UNK
     Route: 042
     Dates: start: 20110129, end: 20110211
  9. CIPRO [Suspect]
     Active Substance: CIPROFLOXACIN HYDROCHLORIDE
     Indication: LARGE INTESTINAL STENOSIS
  10. AVELOX [Suspect]
     Active Substance: MOXIFLOXACIN HYDROCHLORIDE
     Indication: ABDOMINAL ABSCESS
     Dosage: 400 MG, QD
     Dates: start: 20110216, end: 20110217
  11. PRILOSEC [Concomitant]
     Active Substance: OMEPRAZOLE MAGNESIUM
     Dosage: UNK
  12. ENTOCORT [Concomitant]
     Active Substance: BUDESONIDE
     Dosage: UNK
  13. CYCLOSPORINE. [Concomitant]
     Active Substance: CYCLOSPORINE
     Dosage: UNK
  14. ALIGN [Concomitant]
     Active Substance: BIFIDOBACTERIUM LONGUM SUBSP. INFANTIS
     Dosage: 1 DF, QD
  15. MOBIC [Concomitant]
     Active Substance: MELOXICAM
     Dosage: 7.5 MG, BID
  16. CIPRO [Suspect]
     Active Substance: CIPROFLOXACIN HYDROCHLORIDE
     Indication: ABDOMINAL ABSCESS
     Dosage: UNK
     Dates: start: 20110114, end: 20110117
  17. CIPRO [Suspect]
     Active Substance: CIPROFLOXACIN HYDROCHLORIDE
     Indication: LARGE INTESTINAL STENOSIS
  18. CIPRO [Suspect]
     Active Substance: CIPROFLOXACIN HYDROCHLORIDE
     Indication: URINARY TRACT INFECTION
     Dosage: 500 MG, BID
     Dates: start: 20110118, end: 20110127
  19. CIPRO [Suspect]
     Active Substance: CIPROFLOXACIN HYDROCHLORIDE
     Indication: ABDOMINAL ABSCESS
     Dosage: 500 MG, UNK
     Dates: start: 20120403, end: 20120411
  20. CIPRO [Suspect]
     Active Substance: CIPROFLOXACIN HYDROCHLORIDE
     Indication: PELVIC ABSCESS
     Dosage: 750 MG, Q12
     Dates: start: 20110117
  21. AVELOX [Suspect]
     Active Substance: MOXIFLOXACIN HYDROCHLORIDE
     Indication: PELVIC ABSCESS
  22. LEVAQUIN [Suspect]
     Active Substance: LEVOFLOXACIN
     Indication: CLOSTRIDIUM DIFFICILE INFECTION
     Dosage: 500 MG, QD
     Dates: start: 20150521, end: 20150530
  23. REMICADE [Concomitant]
     Active Substance: INFLIXIMAB
     Dosage: 360 MG, Q6WK
     Route: 042
     Dates: start: 200911
  24. LEVAQUIN [Suspect]
     Active Substance: LEVOFLOXACIN
     Indication: CLOSTRIDIUM DIFFICILE INFECTION
     Dosage: 500 MG, UNK
     Dates: start: 20080426, end: 20080505
  25. AZATHIOPRINE. [Concomitant]
     Active Substance: AZATHIOPRINE
     Dosage: UNK
  26. ONDANSETRON [Concomitant]
     Active Substance: ONDANSETRON
     Dosage: UNK
  27. GLIBENCLAMIDE [Concomitant]
     Active Substance: GLYBURIDE
     Dosage: UNK
  28. DILAUDID [Concomitant]
     Active Substance: HYDROMORPHONE HYDROCHLORIDE
     Dosage: UNK
  29. METRONIDAZOLE. [Concomitant]
     Active Substance: METRONIDAZOLE
     Dosage: 500 MG, TID
  30. ULTRAM [Concomitant]
     Active Substance: TRAMADOL HYDROCHLORIDE
     Dosage: UNK
  31. CIPRO [Suspect]
     Active Substance: CIPROFLOXACIN HYDROCHLORIDE
     Indication: PELVIC ABSCESS
     Dosage: UNK
     Route: 042
     Dates: start: 20121030, end: 20121104
  32. CIPRO [Suspect]
     Active Substance: CIPROFLOXACIN HYDROCHLORIDE
     Indication: CLOSTRIDIUM DIFFICILE INFECTION
  33. AVELOX [Suspect]
     Active Substance: MOXIFLOXACIN HYDROCHLORIDE
     Indication: LARGE INTESTINAL STENOSIS
  34. BENTYL [Concomitant]
     Active Substance: DICYCLOMINE HYDROCHLORIDE
     Dosage: UNK
  35. THEOPHYLLINE [Concomitant]
     Active Substance: THEOPHYLLINE ANHYDROUS
     Dosage: UNK
  36. SENNA [Concomitant]
     Active Substance: SENNA LEAF\SENNOSIDES\SENNOSIDES A AND B
     Dosage: UNK
  37. NEXIUM [Concomitant]
     Active Substance: ESOMEPRAZOLE MAGNESIUM
     Dosage: 40 MG, QD
  38. SOLU-MEDROL [Concomitant]
     Active Substance: METHYLPREDNISOLONE SODIUM SUCCINATE
     Dosage: UNK
  39. AMBIEN [Concomitant]
     Active Substance: ZOLPIDEM TARTRATE
     Dosage: 5 MG, HS
  40. BUPROPION. [Concomitant]
     Active Substance: BUPROPION
     Dosage: UNK
  41. CIPRO [Suspect]
     Active Substance: CIPROFLOXACIN HYDROCHLORIDE
     Indication: CROHN^S DISEASE
     Dosage: UNK
     Dates: start: 20091106, end: 20091111
  42. REMICADE [Concomitant]
     Active Substance: INFLIXIMAB
     Dosage: 10 MG/KG, Q4WK
     Dates: end: 20101221
  43. CLOZAPINE. [Concomitant]
     Active Substance: CLOZAPINE
     Dosage: UNK
  44. TIZANIDINE. [Concomitant]
     Active Substance: TIZANIDINE
     Dosage: UNK
  45. METHOTREXATE. [Concomitant]
     Active Substance: METHOTREXATE
     Dosage: UNK
  46. NALTREXONE [Concomitant]
     Active Substance: NALTREXONE
     Dosage: UNK
  47. CIPRO [Suspect]
     Active Substance: CIPROFLOXACIN HYDROCHLORIDE
     Indication: LARGE INTESTINAL STENOSIS
     Dosage: 500 MG, Q12
     Dates: start: 20110129
  48. CIPRO [Suspect]
     Active Substance: CIPROFLOXACIN HYDROCHLORIDE
     Indication: ABDOMINAL ABSCESS
     Dosage: 500 MG, Q12
     Dates: start: 20110215
  49. LEVAQUIN [Suspect]
     Active Substance: LEVOFLOXACIN
     Indication: CLOSTRIDIUM DIFFICILE INFECTION
     Dosage: UNK
     Dates: start: 20121104, end: 20121109
  50. OXYCOD [Concomitant]
  51. METOCLOPRAMIDE. [Concomitant]
     Active Substance: METOCLOPRAMIDE
     Dosage: UNK
  52. SIMETHICONE (DIMETHICONE) [Concomitant]
     Active Substance: DIMETHICONE
     Dosage: UNK
  53. WARFARIN [Concomitant]
     Active Substance: WARFARIN
     Dosage: UNK
  54. ROPINIROLE. [Concomitant]
     Active Substance: ROPINIROLE
     Dosage: UNK
  55. DULOXETINE. [Concomitant]
     Active Substance: DULOXETINE
     Dosage: UNK

REACTIONS (30)
  - Spinal osteoarthritis [None]
  - Mental impairment [None]
  - Diarrhoea [None]
  - Tremor [Not Recovered/Not Resolved]
  - Pain [Not Recovered/Not Resolved]
  - Malaise [None]
  - Retching [None]
  - Muscle spasms [Not Recovered/Not Resolved]
  - Abdominal pain [None]
  - Abdominal tenderness [None]
  - Neuropathy peripheral [None]
  - Fibromyalgia [None]
  - Nausea [None]
  - Frequent bowel movements [None]
  - Fatigue [None]
  - Dystonia [None]
  - Mental disorder [None]
  - Pyrexia [None]
  - Complex regional pain syndrome [None]
  - Limb injury [None]
  - Anxiety [None]
  - Weight decreased [None]
  - Amnesia [None]
  - Dyskinesia [None]
  - Gait disturbance [None]
  - Osteoarthritis [None]
  - Toxicity to various agents [None]
  - Vomiting [None]
  - Decreased appetite [None]
  - Somnolence [None]

NARRATIVE: CASE EVENT DATE: 2009
